FAERS Safety Report 24414941 (Version 1)
Quarter: 2024Q4

REPORT INFORMATION
  Report Type: Other
  Country: CL (occurrence: CL)
  Receive Date: 20241009
  Receipt Date: 20241009
  Transmission Date: 20250114
  Serious: Yes (Hospitalization, Other)
  Sender: DEXCEL
  Company Number: CL-DEXPHARM-2024-3342

PATIENT
  Sex: Male

DRUGS (10)
  1. DEXAMETHASONE [Interacting]
     Active Substance: DEXAMETHASONE
     Dosage: DEXAMETHASONE 6 MG/M2/DAY AND CYCLOPHOSPHAMIDE 100MG/M2/DAY FOR 5 DAYS (6MG/M3)
  2. DEXAMETHASONE [Interacting]
     Active Substance: DEXAMETHASONE
     Dosage: CONTINUING CYTOREDUCTION WITH DEXAMETHASONE AT HALF THE INITIAL DOSE (3MG/M2/DAY) (3MG/M3)
  3. CYCLOPHOSPHAMIDE [Concomitant]
     Active Substance: CYCLOPHOSPHAMIDE
     Dosage: DEXAMETHASONE 6 MG/M2/DAY AND CYCLOPHOSPHAMIDE 100MG/M2/DAY FOR 5 DAYS (100MG/M3)
  4. ALLOPURINOL [Concomitant]
     Active Substance: ALLOPURINOL
     Dosage: ALLOPURINOL 10 MG/KG/DAY EVERY 8 HOURS
  5. RASBURICASE [Concomitant]
     Active Substance: RASBURICASE
     Dosage: RASBURICASE TO TREAT TUMOR LYSIS SYNDROME (0.2 MG/KG/DAY)
  6. FUROSEMIDE [Concomitant]
     Active Substance: FUROSEMIDE
  7. AMLODIPINE [Concomitant]
     Active Substance: AMLODIPINE BESYLATE
  8. ENOXAPARIN [Concomitant]
     Active Substance: ENOXAPARIN
     Dosage: ENOXAPARIN (1 MG/KG EVERY 12 HOURS) WAS INDICATED FOR 20 DAYS
  9. ASPARAGINASE [Interacting]
     Active Substance: ASPARAGINASE
  10. PREDNISONE [Interacting]
     Active Substance: PREDNISONE

REACTIONS (3)
  - Pseudohyponatraemia [Unknown]
  - Hypertriglyceridaemia [Recovered/Resolved]
  - Drug interaction [Recovered/Resolved]
